FAERS Safety Report 23382130 (Version 1)
Quarter: 2024Q1

REPORT INFORMATION
  Report Type: Spontaneous
  Country: US (occurrence: None)
  Receive Date: 20240108
  Receipt Date: 20240108
  Transmission Date: 20240410
  Serious: Yes (Hospitalization)
  Sender: FDA-Public Use
  Company Number: None

PATIENT
  Sex: Female

DRUGS (27)
  1. FORTEO [Suspect]
     Active Substance: TERIPARATIDE
     Indication: Osteoporosis
     Dosage: OTHER QUANTITY : 600 MCG/2.4ML ;?
     Route: 058
     Dates: start: 20230414
  2. ALBUTEROL [Concomitant]
  3. ASPERCREME CRE LIDOCAIN [Concomitant]
  4. ATORVASTATIN [Concomitant]
     Active Substance: ATORVASTATIN
  5. BIOTIN [Concomitant]
     Active Substance: BIOTIN
  6. BUT/APAP/CAF [Concomitant]
  7. CALCIUM 500 TAB/VIT D3 [Concomitant]
  8. ELIQUIS [Concomitant]
     Active Substance: APIXABAN
  9. ENTRESTO [Concomitant]
     Active Substance: SACUBITRIL\VALSARTAN
  10. FARXIGA [Concomitant]
     Active Substance: DAPAGLIFLOZIN PROPANEDIOL
  11. FLUTICASONE [Concomitant]
     Active Substance: FLUTICASONE
  12. FUROSEMIDE [Concomitant]
     Active Substance: FUROSEMIDE
  13. LEVOTHYROXINE [Concomitant]
     Active Substance: LEVOTHYROXINE
  14. LIDOCAINE [Concomitant]
     Active Substance: LIDOCAINE
  15. LOSARTAN POTASSIUM [Concomitant]
     Active Substance: LOSARTAN POTASSIUM
  16. METAMUCIL [Concomitant]
     Active Substance: PLANTAGO SEED
  17. METOPROLOL SUC [Concomitant]
  18. METOPROLOL TARTRATE [Concomitant]
     Active Substance: METOPROLOL TARTRATE
  19. NITROGLYCERIN [Concomitant]
     Active Substance: NITROGLYCERIN
  20. PEPCID [Concomitant]
     Active Substance: FAMOTIDINE
  21. PLAVIX [Concomitant]
     Active Substance: CLOPIDOGREL BISULFATE
  22. PREMARIN [Concomitant]
  23. SYNTHROID [Concomitant]
     Active Substance: LEVOTHYROXINE SODIUM
  24. TRAMADOL HCL [Concomitant]
     Active Substance: TRAMADOL HYDROCHLORIDE
  25. VITAMIN B12 [Concomitant]
     Active Substance: CYANOCOBALAMIN
  26. VITAMIN C [Concomitant]
     Active Substance: ASCORBIC ACID
  27. VITAMIN D3 [Concomitant]
     Active Substance: CHOLECALCIFEROL

REACTIONS (3)
  - Myocardial infarction [None]
  - Cardiac arrest [None]
  - Therapy interrupted [None]
